FAERS Safety Report 13330279 (Version 1)
Quarter: 2017Q1

REPORT INFORMATION
  Report Type: Spontaneous
  Country: JP (occurrence: JP)
  Receive Date: 20170314
  Receipt Date: 20170314
  Transmission Date: 20170428
  Serious: Yes (Other)
  Sender: FDA-Public Use
  Company Number: JP-SUN PHARMACEUTICAL INDUSTRIES LTD-2015R1-108444

PATIENT
  Age: 72 Year
  Sex: Male

DRUGS (1)
  1. DOCETAXEL. [Suspect]
     Active Substance: DOCETAXEL
     Indication: HORMONE-REFRACTORY PROSTATE CANCER
     Dosage: CYCLICAL (36 MG/M^2 Q2W)
     Route: 065

REACTIONS (2)
  - Chylothorax [Recovering/Resolving]
  - Ascites [Recovering/Resolving]

NARRATIVE: CASE EVENT DATE: 2013
